FAERS Safety Report 7268112-5 (Version None)
Quarter: 2011Q1

REPORT INFORMATION
  Report Type: 
  Country: None (occurrence: None)
  Receive Date: 20110201
  Receipt Date: 20110128
  Transmission Date: 20110831
  Serious: No
  Sender: FDA-Public Use
  Company Number: US-PFIZER INC-2011020908

PATIENT
  Sex: Male
  Weight: 84 kg

DRUGS (6)
  1. FISH OIL [Concomitant]
     Dosage: UNK
  2. LIPITOR [Suspect]
     Indication: BLOOD CHOLESTEROL INCREASED
     Dosage: 40 MG, DAILY
     Route: 048
     Dates: start: 20080101
  3. PLAVIX [Concomitant]
     Dosage: 75 MG, UNK
  4. LOSARTAN [Concomitant]
     Dosage: 100 MG, DAILY
  5. ACETYLSALICYLIC ACID [Concomitant]
     Dosage: UNK
  6. PINDOLOL [Concomitant]
     Dosage: 5 MG, 2X/DAY

REACTIONS (3)
  - MUSCULOSKELETAL PAIN [None]
  - PAIN IN EXTREMITY [None]
  - MYALGIA [None]
